FAERS Safety Report 23985997 (Version 1)
Quarter: 2024Q2

REPORT INFORMATION
  Report Type: Spontaneous
  Country: DK (occurrence: DK)
  Receive Date: 20240618
  Receipt Date: 20240618
  Transmission Date: 20240716
  Serious: Yes (Other)
  Sender: FDA-Public Use
  Company Number: DK-PFIZER INC-202400188205

PATIENT

DRUGS (1)
  1. FRAGMIN [Suspect]
     Active Substance: DALTEPARIN SODIUM
     Dosage: UNK

REACTIONS (4)
  - Scratch [Unknown]
  - Wound haemorrhage [Unknown]
  - Product packaging difficult to open [Unknown]
  - Product packaging issue [Unknown]
